FAERS Safety Report 8992014 (Version 1)
Quarter: 2012Q4

REPORT INFORMATION
  Report Type: 
  Country: NL (occurrence: NL)
  Receive Date: 20121231
  Receipt Date: 20121231
  Transmission Date: 20130627
  Serious: Yes (Death)
  Sender: FDA-Public Use
  Company Number: PHHY2012NL120948

PATIENT
  Age: 56 Year
  Sex: Male

DRUGS (1)
  1. TOBI [Suspect]

REACTIONS (1)
  - Death [Fatal]
